FAERS Safety Report 5663806-7 (Version None)
Quarter: 2008Q1

REPORT INFORMATION
  Report Type: 
  Country: None (occurrence: None)
  Receive Date: 20080310
  Receipt Date: 20080226
  Transmission Date: 20080703
  Serious: Yes (Other)
  Sender: FDA-Public Use
  Company Number: 2008004774

PATIENT
  Sex: Female

DRUGS (3)
  1. NICORETTE [Suspect]
     Dosage: (15 MG), TRANSDERMAL
     Route: 062
  2. DRUG, UNSPECIFIED (DRUG, UNSPECIFIED) [Concomitant]
  3. STEROID ANTIBACTERIALS (STEROID ANTIBACTERIALS) [Concomitant]

REACTIONS (2)
  - HALLUCINATION [None]
  - TREMOR [None]
